FAERS Safety Report 24728871 (Version 2)
Quarter: 2024Q4

REPORT INFORMATION
  Report Type: Spontaneous
  Country: US (occurrence: US)
  Receive Date: 20241212
  Receipt Date: 20241220
  Transmission Date: 20250115
  Serious: Yes (Hospitalization, Other)
  Sender: JOHNSON AND JOHNSON
  Company Number: US-ViiV Healthcare-119364

PATIENT
  Age: 46 Year
  Sex: Male

DRUGS (2)
  1. CABENUVA [Suspect]
     Active Substance: CABOTEGRAVIR\RILPIVIRINE
     Indication: Product used for unknown indication
     Dosage: UNK
     Route: 030
  2. CABENUVA [Suspect]
     Active Substance: CABOTEGRAVIR\RILPIVIRINE
     Indication: Product used for unknown indication
     Dosage: UNK
     Route: 030

REACTIONS (5)
  - Pulmonary embolism [Unknown]
  - Deep vein thrombosis [Unknown]
  - Viral load increased [Unknown]
  - Wrong technique in device usage process [Unknown]
  - Inappropriate schedule of product administration [Unknown]

NARRATIVE: CASE EVENT DATE: 20240909
